FAERS Safety Report 22041719 (Version 1)
Quarter: 2023Q1

REPORT INFORMATION
  Report Type: Spontaneous
  Country: US (occurrence: None)
  Receive Date: 20230224
  Receipt Date: 20230224
  Transmission Date: 20230417
  Serious: No
  Sender: FDA-Public Use
  Company Number: None

PATIENT
  Age: 74 Year
  Sex: Male

DRUGS (2)
  1. SUNITINIB [Suspect]
     Active Substance: SUNITINIB
     Dosage: 37.5 MG OTHER ORAL
     Route: 048
     Dates: start: 202301
  2. LISINOPRIL [Suspect]
     Active Substance: LISINOPRIL

REACTIONS (3)
  - Swollen tongue [None]
  - Product use complaint [None]
  - Foreign body in throat [None]

NARRATIVE: CASE EVENT DATE: 20230223
